FAERS Safety Report 9117839 (Version 1)
Quarter: 2013Q1

REPORT INFORMATION
  Report Type: Spontaneous
  Country: US (occurrence: US)
  Receive Date: 20130225
  Receipt Date: 20130225
  Transmission Date: 20140127
  Serious: No
  Sender: FDA-Public Use
  Company Number: US-009507513-1302USA009418

PATIENT
  Age: 23 Year
  Sex: Female
  Weight: 77.98 kg

DRUGS (1)
  1. NUVARING [Suspect]
     Indication: CONTRACEPTION
     Dosage: ONE RING INSERTED EVERY FOUR WEEKS
     Route: 059

REACTIONS (3)
  - Vulvovaginal discomfort [Unknown]
  - Device expulsion [Unknown]
  - Product quality issue [Unknown]
